FAERS Safety Report 4627220-5 (Version None)
Quarter: 2005Q1

REPORT INFORMATION
  Report Type: 
  Country: None (occurrence: None)
  Receive Date: 20050331
  Receipt Date: 20050323
  Transmission Date: 20050727
  Serious: Yes (Hospitalization)
  Sender: FDA-Public Use
  Company Number: 2005UW04517

PATIENT

DRUGS (7)
  1. SEROQUEL [Suspect]
  2. WELLBUTRIN SR [Suspect]
  3. LITHIUM CARBONATE [Suspect]
  4. COGENTIN [Suspect]
  5. KLONOPIN [Suspect]
  6. TRAZODONE HCL [Suspect]
  7. PROLIXIN [Suspect]

REACTIONS (1)
  - DRUG INTERACTION [None]
